FAERS Safety Report 5748259-2 (Version None)
Quarter: 2008Q2

REPORT INFORMATION
  Report Type: 
  Country: None (occurrence: None)
  Receive Date: 20080523
  Receipt Date: 20080514
  Transmission Date: 20081010
  Serious: Yes (Life-Threatening, Hospitalization, Other)
  Sender: FDA-Public Use
  Company Number: US-PFIZER INC-2007055183

PATIENT
  Sex: Female
  Weight: 64 kg

DRUGS (22)
  1. CHANTIX [Suspect]
     Indication: SMOKING CESSATION THERAPY
     Route: 048
  2. ROCEPHIN [Suspect]
     Indication: NASOPHARYNGITIS
     Dates: start: 20070905, end: 20070905
  3. ALBUTEROL [Concomitant]
  4. ADVAIR DISKUS 100/50 [Concomitant]
  5. CENTRUM SILVER [Concomitant]
  6. NORVASC [Concomitant]
  7. ALLEGRA [Concomitant]
  8. LASIX [Concomitant]
  9. SYNTHROID [Concomitant]
  10. ZOLOFT [Concomitant]
  11. PRILOSEC [Concomitant]
  12. MULTIVITAMIN [Concomitant]
  13. CLORAZEPATE [Concomitant]
  14. VOLTAREN [Concomitant]
  15. LYRICA [Concomitant]
  16. POTASSIUM CHLORIDE [Concomitant]
  17. ALL OTHER THERAPEUTIC PRODUCTS [Concomitant]
  18. TYLENOL [Concomitant]
  19. FEOSOL [Concomitant]
  20. CELEBREX [Concomitant]
  21. WELLBUTRIN [Concomitant]
  22. PREVACID [Concomitant]

REACTIONS (23)
  - ABASIA [None]
  - ABNORMAL DREAMS [None]
  - ANAPHYLACTIC REACTION [None]
  - ANAPHYLACTIC SHOCK [None]
  - ANXIETY [None]
  - ASTHMA [None]
  - BLOOD CHOLESTEROL INCREASED [None]
  - CHEST DISCOMFORT [None]
  - CHRONIC OBSTRUCTIVE PULMONARY DISEASE [None]
  - CONFUSIONAL STATE [None]
  - COUGH [None]
  - DIZZINESS [None]
  - DYSPNOEA [None]
  - DYSTHYMIC DISORDER [None]
  - FEELING ABNORMAL [None]
  - HUNGER [None]
  - HYPERHIDROSIS [None]
  - HYPERSENSITIVITY [None]
  - NASOPHARYNGITIS [None]
  - NAUSEA [None]
  - PHARYNGOLARYNGEAL PAIN [None]
  - SMOKER [None]
  - SPEECH DISORDER [None]
